FAERS Safety Report 6053511-X (Version None)
Quarter: 2009Q1

REPORT INFORMATION
  Report Type: 
  Country: None (occurrence: None)
  Receive Date: 20090127
  Receipt Date: 20080702
  Transmission Date: 20090719
  Serious: No
  Sender: FDA-Public Use
  Company Number: US-TEVA-174319USA

PATIENT
  Sex: Female

DRUGS (6)
  1. COPAXONE [Suspect]
     Indication: MULTIPLE SCLEROSIS
     Route: 058
  2. COPAXONE [Suspect]
     Route: 058
  3. OXYCODONE HYDROCHLORIDE [Concomitant]
  4. DIPHENHYDRAMINE HCL [Concomitant]
  5. BACTRIM [Concomitant]
  6. GABAPENTIN [Concomitant]

REACTIONS (1)
  - ANAEMIA [None]
